FAERS Safety Report 13243172 (Version 1)
Quarter: 2017Q1

REPORT INFORMATION
  Report Type: Spontaneous
  Country: US (occurrence: US)
  Receive Date: 20170216
  Receipt Date: 20170216
  Transmission Date: 20170428
  Serious: Yes (Hospitalization, Other)
  Sender: FDA-Public Use
  Company Number: None

PATIENT
  Age: 3 Month
  Sex: Male

DRUGS (1)
  1. PROPRANOLOL [Suspect]
     Active Substance: PROPRANOLOL HYDROCHLORIDE

REACTIONS (4)
  - Bradycardia [None]
  - Neutropenia [None]
  - Hypothermia [None]
  - Agranulocytosis [None]

NARRATIVE: CASE EVENT DATE: 20161110
